FAERS Safety Report 23466494 (Version 1)
Quarter: 2024Q1

REPORT INFORMATION
  Report Type: Spontaneous
  Country: US (occurrence: None)
  Receive Date: 20240131
  Receipt Date: 20240131
  Transmission Date: 20240410
  Serious: No
  Sender: FDA-Public Use
  Company Number: None

PATIENT
  Sex: Female

DRUGS (1)
  1. PROMACTA [Suspect]
     Active Substance: ELTROMBOPAG OLAMINE
     Indication: Thrombocytopenia
     Dosage: FREQUENCY : DAILY;?
     Route: 048

REACTIONS (8)
  - Pyrexia [None]
  - Chills [None]
  - Sepsis [None]
  - Hydronephrosis [None]
  - Calculus urethral [None]
  - Calculus bladder [None]
  - Nephrolithiasis [None]
  - Platelet count decreased [None]
